FAERS Safety Report 10037986 (Version 1)
Quarter: 2014Q1

REPORT INFORMATION
  Report Type: Spontaneous
  Country: FR (occurrence: FR)
  Receive Date: 20140326
  Receipt Date: 20140326
  Transmission Date: 20141002
  Serious: Yes (Hospitalization)
  Sender: FDA-Public Use
  Company Number: FR-SA-2014SA036088

PATIENT
  Age: 86 Year
  Sex: Male

DRUGS (5)
  1. FLAGYL [Suspect]
     Indication: GASTROENTERITIS
     Route: 048
     Dates: start: 20140203, end: 20140205
  2. LASILIX FAIBLE [Suspect]
     Indication: PRODUCT USED FOR UNKNOWN INDICATION
     Route: 048
     Dates: end: 20140205
  3. PREVISCAN [Suspect]
     Indication: PRODUCT USED FOR UNKNOWN INDICATION
     Route: 048
     Dates: end: 20140208
  4. COVERSYL [Concomitant]
     Route: 048
     Dates: start: 20140205
  5. PRAVADUAL [Concomitant]
     Route: 048
     Dates: start: 20140205

REACTIONS (5)
  - International normalised ratio abnormal [Recovered/Resolved]
  - Renal failure acute [Recovered/Resolved]
  - General physical health deterioration [Recovered/Resolved]
  - Vomiting [Recovered/Resolved]
  - Dehydration [Recovered/Resolved]
